FAERS Safety Report 12960358 (Version 1)
Quarter: 2016Q4

REPORT INFORMATION
  Report Type: Spontaneous
  Country: US (occurrence: US)
  Receive Date: 20161120
  Receipt Date: 20161120
  Transmission Date: 20170207
  Serious: Yes (Other)
  Sender: FDA-Public Use
  Company Number: None

PATIENT
  Age: 27 Year
  Sex: Female
  Weight: 85.05 kg

DRUGS (2)
  1. IRON [Concomitant]
     Active Substance: IRON
  2. ICY HOT [Suspect]
     Active Substance: MENTHOL\METHYL SALICYLATE
     Indication: BACK PAIN
     Route: 061
     Dates: start: 20161118

REACTIONS (3)
  - Application site burn [None]
  - Application site irritation [None]
  - Application site vesicles [None]

NARRATIVE: CASE EVENT DATE: 20161118
